FAERS Safety Report 7620395-5 (Version None)
Quarter: 2011Q3

REPORT INFORMATION
  Report Type: 
  Country: None (occurrence: None)
  Receive Date: 20110718
  Receipt Date: 20110718
  Transmission Date: 20111222
  Serious: No
  Sender: FDA-Public Use
  Company Number: None

PATIENT
  Age: 73 Year
  Sex: Female
  Weight: 122.46 kg

DRUGS (2)
  1. AROMASIN [Concomitant]
     Indication: BLOOD OESTROGEN
     Dosage: 25 MG
     Route: 048
     Dates: start: 20100615, end: 20110715
  2. FASLODEX [Suspect]
     Indication: BREAST CANCER METASTATIC
     Dosage: 25 MG -I THINK-
     Route: 030
     Dates: start: 20090202, end: 20100615

REACTIONS (1)
  - EJECTION FRACTION DECREASED [None]
